FAERS Safety Report 9225072 (Version 3)
Quarter: 2013Q2

REPORT INFORMATION
  Report Type: Spontaneous
  Country: ZA (occurrence: None)
  Receive Date: 20130409
  Receipt Date: 20130418
  Transmission Date: 20140414
  Serious: Yes (Other)
  Sender: FDA-Public Use
  Company Number: AUR-APL-2013-02853

PATIENT
  Age: 10 Year
  Sex: Female

DRUGS (14)
  1. EFAVIRENZ [Suspect]
     Indication: ANTIRETROVIRAL THERAPY
     Dosage: UNKNOWN
  2. LAMIVUDINE [Suspect]
     Indication: ANTIRETROVIRAL THERAPY
     Dosage: UNKNOWN
  3. STAVUDINE [Suspect]
     Indication: ANTIRETROVIRAL THERAPY
  4. AMOXICILLIN+CLAVULANIC ACID [Suspect]
     Indication: TUBERCULOSIS
  5. LINEZOLID [Suspect]
     Indication: TUBERCULOSIS
     Dosage: 600 MG (300 MG, 2 IN 1 D) UNKNOWN
  6. CAPREOMYCIN [Suspect]
     Indication: TUBERCULOSIS
  7. CLARITHROMYCIN (CLARITHROMYCIN) [Suspect]
     Indication: TUBERCULOSIS
  8. ISONIAZID [Suspect]
     Indication: TUBERCULOSIS
  9. OFLOXACIN [Suspect]
     Indication: TUBERCULOSIS
  10. PYRAZINAMIDE [Suspect]
     Indication: TUBERCULOSIS
  11. TERIZIDONE [Suspect]
     Indication: TUBERCULOSIS
  12. PYRIDOXINE [Concomitant]
  13. ABACAVIR [Suspect]
     Indication: ANTIRETROVIRAL THERAPY
  14. PARA-AMINOSALICYLIC ACID [Suspect]
     Indication: TUBERCULOSIS

REACTIONS (6)
  - Neuropathy peripheral [None]
  - Anaemia [None]
  - Leukopenia [None]
  - Erythropoiesis abnormal [None]
  - Transaminases increased [None]
  - Blood thyroid stimulating hormone increased [None]
